FAERS Safety Report 9289468 (Version 1)
Quarter: 2013Q2

REPORT INFORMATION
  Report Type: Spontaneous
  Country: US (occurrence: US)
  Receive Date: 20130514
  Receipt Date: 20130514
  Transmission Date: 20140414
  Serious: Yes (Hospitalization)
  Sender: FDA-Public Use
  Company Number: US-B.I. PHARMACEUTICALS,INC./RIDGEFIELD-2013-BI-13085BP

PATIENT
  Age: 64 Year
  Sex: Female
  Weight: 120 kg

DRUGS (2)
  1. SPIRIVA [Suspect]
     Indication: BRONCHITIS CHRONIC
     Dosage: 18 MCG
     Route: 055
     Dates: start: 201204
  2. ALBUTEROL [Concomitant]
     Indication: BRONCHITIS CHRONIC
     Route: 055
     Dates: start: 2011

REACTIONS (2)
  - Atrial fibrillation [Recovered/Resolved]
  - Incorrect route of drug administration [Recovered/Resolved]
